FAERS Safety Report 10101775 (Version 1)
Quarter: 2014Q2

REPORT INFORMATION
  Report Type: Spontaneous
  Country: US (occurrence: None)
  Receive Date: 20140422
  Receipt Date: 20140422
  Transmission Date: 20141212
  Serious: Yes (Hospitalization)
  Sender: FDA-Public Use
  Company Number: 2014P1003160

PATIENT
  Age: 32 Year
  Sex: Male

DRUGS (9)
  1. BENZTROPINE [Suspect]
  2. HALOPERIDOL [Suspect]
  3. CHLORPROMAZINE [Suspect]
  4. CITALOPRAM [Concomitant]
  5. ACETAMINOPHEN [Concomitant]
  6. VALPROIC ACID [Concomitant]
  7. HYDROXYZINE [Concomitant]
  8. LEVOTHYROXINE [Concomitant]
  9. PSYLLUM DIETARY FIBER [Concomitant]

REACTIONS (1)
  - Neuroleptic malignant syndrome [None]
